FAERS Safety Report 15939213 (Version 1)
Quarter: 2019Q1

REPORT INFORMATION
  Report Type: Report from Study
  Country: US (occurrence: US)
  Receive Date: 20190208
  Receipt Date: 20190208
  Transmission Date: 20190417
  Serious: Yes (Other)
  Sender: FDA-Public Use
  Company Number: US-GILEAD-2019-0389460

PATIENT
  Age: 45 Year
  Sex: Male

DRUGS (3)
  1. AMBRISENTAN [Suspect]
     Active Substance: AMBRISENTAN
     Indication: PRODUCT USED FOR UNKNOWN INDICATION
     Dosage: 10 MG, QD
     Route: 065
     Dates: start: 20171206
  2. VELETRI [Concomitant]
     Active Substance: EPOPROSTENOL
  3. ELIQUIS [Concomitant]
     Active Substance: APIXABAN

REACTIONS (6)
  - Pain in extremity [Unknown]
  - Arterial disorder [Unknown]
  - Catheterisation cardiac [Unknown]
  - Gallbladder disorder [Unknown]
  - Swelling [Unknown]
  - Erythema [Unknown]
